FAERS Safety Report 5743142-0 (Version None)
Quarter: 2008Q2

REPORT INFORMATION
  Report Type: 
  Country: None (occurrence: None)
  Receive Date: 20080519
  Receipt Date: 20080509
  Transmission Date: 20081010
  Serious: Yes (Life-Threatening, Other)
  Sender: FDA-Public Use
  Company Number: US-ABBOTT-08P-163-0451177-00

PATIENT
  Sex: Male

DRUGS (2)
  1. SIMCOR [Suspect]
     Indication: LIPIDS INCREASED
     Dosage: 500/20MG
     Route: 048
     Dates: start: 20080508, end: 20080508
  2. LANSOPRAZOLE [Concomitant]
     Indication: GASTROOESOPHAGEAL REFLUX DISEASE
     Route: 048

REACTIONS (4)
  - ANAPHYLACTIC REACTION [None]
  - FEELING ABNORMAL [None]
  - PHARYNGEAL OEDEMA [None]
  - URTICARIA [None]
